FAERS Safety Report 6212733-5 (Version None)
Quarter: 2009Q2

REPORT INFORMATION
  Report Type: 
  Country: None (occurrence: None)
  Receive Date: 20090603
  Receipt Date: 20090529
  Transmission Date: 20091009
  Serious: Yes (Death)
  Sender: FDA-Public Use
  Company Number: US-BRISTOL-MYERS SQUIBB COMPANY-14637193

PATIENT
  Age: 87 Year
  Sex: Male

DRUGS (2)
  1. ABILIFY [Suspect]
     Indication: WEIGHT INCREASED
     Dates: start: 20081027
  2. REMERON [Suspect]

REACTIONS (3)
  - DYSPHAGIA [None]
  - DYSPNOEA [None]
  - MYOCARDIAL INFARCTION [None]
